FAERS Safety Report 22149350 (Version 1)
Quarter: 2023Q1

REPORT INFORMATION
  Report Type: Spontaneous
  Country: HU (occurrence: HU)
  Receive Date: 20230329
  Receipt Date: 20230329
  Transmission Date: 20230417
  Serious: Yes (Other)
  Sender: FDA-Public Use
  Company Number: HU-AMGEN-HUNSP2023050033

PATIENT
  Age: 75 Year
  Sex: Female
  Weight: 61 kg

DRUGS (4)
  1. MVASI [Suspect]
     Active Substance: BEVACIZUMAB-AWWB
     Indication: Colon cancer
     Dosage: 305 MILLIGRAM, Q2WK
     Route: 042
     Dates: start: 20221103, end: 20230126
  2. OXALIPLATIN [Concomitant]
     Active Substance: OXALIPLATIN
     Indication: Colon cancer
     Dosage: UNK
     Route: 042
     Dates: start: 20230126, end: 20230126
  3. ONDANSETRON HYDROCHLORIDE [Concomitant]
     Active Substance: ONDANSETRON HYDROCHLORIDE
     Indication: Chemotherapy side effect prophylaxis
     Dosage: UNK
     Route: 042
     Dates: start: 20221103, end: 20230126
  4. SOLU-MEDROL [Concomitant]
     Active Substance: METHYLPREDNISOLONE SODIUM SUCCINATE
     Indication: Chemotherapy side effect prophylaxis
     Dosage: UNK
     Route: 042
     Dates: start: 20221103, end: 20230126

REACTIONS (1)
  - Conjunctival haemorrhage [Recovered/Resolved]

NARRATIVE: CASE EVENT DATE: 20230126
